FAERS Safety Report 17444968 (Version 1)
Quarter: 2020Q1

REPORT INFORMATION
  Report Type: Spontaneous
  Country: FR (occurrence: FR)
  Receive Date: 20200221
  Receipt Date: 20200221
  Transmission Date: 20200409
  Serious: Yes (Hospitalization)
  Sender: FDA-Public Use
  Company Number: FR-PFIZER INC-2020075688

PATIENT
  Age: 48 Year
  Sex: Male

DRUGS (5)
  1. PANTOPRAZOLE [Suspect]
     Active Substance: PANTOPRAZOLE
     Dosage: UNK
     Route: 048
     Dates: start: 20191124, end: 20191124
  2. LOXAPAC [Suspect]
     Active Substance: LOXAPINE
     Dosage: 100 MG, UNK
     Route: 048
     Dates: start: 20191124, end: 20191124
  3. PARKINANE [Suspect]
     Active Substance: TRIHEXYPHENIDYL HYDROCHLORIDE
     Dosage: 2 DF, UNK
     Route: 048
     Dates: start: 20191124, end: 20191124
  4. OLANZAPINE. [Suspect]
     Active Substance: OLANZAPINE
     Dosage: UNK
     Route: 048
     Dates: start: 20191124, end: 20191124
  5. NOZINAN [Suspect]
     Active Substance: LEVOMEPROMAZINE
     Dosage: 200 MG, UNK
     Route: 048
     Dates: start: 20191124, end: 20191124

REACTIONS (3)
  - Somnolence [Recovered/Resolved]
  - Blood creatine phosphokinase increased [Unknown]
  - Wrong patient received product [Recovered/Resolved]

NARRATIVE: CASE EVENT DATE: 20191124
